FAERS Safety Report 9973187 (Version 1)
Quarter: 2014Q1

REPORT INFORMATION
  Report Type: Spontaneous
  Country: US (occurrence: None)
  Receive Date: 20140214
  Receipt Date: 20140214
  Transmission Date: 20141002
  Serious: Yes (Hospitalization)
  Sender: FDA-Public Use
  Company Number: FK201300546

PATIENT
  Age: 46 Year
  Sex: Female

DRUGS (1)
  1. ROCURONIUM BROMIDE INJECTION (ROCURONIUM BROMIDE) (ROCURONIUM BROMIDE) [Suspect]
     Indication: GENERAL ANAESTHESIA
     Route: 042
     Dates: start: 20130130, end: 20130130

REACTIONS (1)
  - Neuromuscular block prolonged [None]
